FAERS Safety Report 4592749-5 (Version None)
Quarter: 2005Q1

REPORT INFORMATION
  Report Type: 
  Country: None (occurrence: None)
  Receive Date: 20050228
  Receipt Date: 20040611
  Transmission Date: 20050727
  Serious: Yes (Other)
  Sender: FDA-Public Use
  Company Number: JP-SOLVAY-00304001915

PATIENT
  Age: 31 Year
  Sex: Female
  Weight: 51 kg

DRUGS (7)
  1. RIZE [Concomitant]
     Indication: DEPRESSION
     Dosage: DAILY DOSE: 15 MILLIGRAM(S)
     Route: 048
     Dates: start: 20020101, end: 20040602
  2. DEPROMEL 25 [Suspect]
     Indication: DEPRESSION
     Dosage: DAILY DOSE: 25 MILLIGRAM(S)
     Route: 048
     Dates: start: 20040528, end: 20040602
  3. DEPAS [Concomitant]
     Indication: DEPRESSION
     Dosage: DAILY DOSE: 1 MILLIGRAM(S)
     Route: 048
     Dates: start: 20020101, end: 20040602
  4. SOLANAX [Concomitant]
     Indication: ANXIETY
     Dosage: DAILY DOSE: .4 MILLIGRAM(S)
     Route: 048
     Dates: start: 20040605, end: 20040605
  5. ZANTAC [Concomitant]
     Indication: GASTRITIS EROSIVE
     Dosage: DAILY DOSE: 150 MG. FREQUENCY:UNKNOWN
     Route: 048
     Dates: start: 20040610, end: 20040615
  6. GASMOTIN [Concomitant]
     Indication: GASTRITIS
     Dosage: DAILY DOSE: 3 DF. FREQUENCY:UNKNOWN
     Route: 048
     Dates: start: 20040610, end: 20040615
  7. VOLTAREN [Concomitant]
     Indication: PAIN
     Dosage: DAILY DOSE: 50 MILLIGRAM(S)
     Route: 065
     Dates: start: 20040604, end: 20040604

REACTIONS (10)
  - ABDOMINAL PAIN [None]
  - BLOOD CALCIUM DECREASED [None]
  - BLOOD POTASSIUM DECREASED [None]
  - BLOOD PRESSURE DIASTOLIC INCREASED [None]
  - DIFFERENTIAL WHITE BLOOD CELL COUNT ABNORMAL [None]
  - DYSURIA [None]
  - GLUCOSE URINE [None]
  - HEPATIC ENZYME INCREASED [None]
  - INAPPROPRIATE ANTIDIURETIC HORMONE SECRETION [None]
  - REFUSAL OF TREATMENT BY PATIENT [None]
